FAERS Safety Report 18538852 (Version 3)
Quarter: 2023Q2

REPORT INFORMATION
  Report Type: Spontaneous
  Country: US (occurrence: US)
  Receive Date: 20201123
  Receipt Date: 20230526
  Transmission Date: 20230721
  Serious: Yes (Other)
  Sender: FDA-Public Use
  Company Number: US-UCBSA-2020046624

PATIENT
  Age: 39 Year
  Sex: Female

DRUGS (1)
  1. CIMZIA [Suspect]
     Active Substance: CERTOLIZUMAB PEGOL
     Indication: Product used for unknown indication
     Dosage: 200 MILLIGRAM, UNK
     Route: 058
     Dates: start: 202009

REACTIONS (4)
  - Fungal infection [Unknown]
  - Psoriasis [Unknown]
  - Rash [Unknown]
  - Tooth abscess [Unknown]

NARRATIVE: CASE EVENT DATE: 20200901
